FAERS Safety Report 8070766-0 (Version None)
Quarter: 2012Q1

REPORT INFORMATION
  Report Type: 
  Country: None (occurrence: None)
  Receive Date: 20120125
  Receipt Date: 20120113
  Transmission Date: 20120608
  Serious: Yes (Hospitalization)
  Sender: FDA-Public Use
  Company Number: IT-ELI_LILLY_AND_COMPANY-IT201201004684

PATIENT
  Age: 68 Year
  Sex: Female

DRUGS (4)
  1. LITHIUM CARBONATE [Concomitant]
     Dosage: 900 MG, QD
     Dates: start: 20111001, end: 20111201
  2. ANXIOLYTICS [Concomitant]
     Dosage: UNK, PRN
  3. ZYPREXA [Suspect]
     Dosage: 5 MG, QD
     Dates: start: 20120113
  4. ZYPREXA [Suspect]
     Indication: BIPOLAR DISORDER
     Dosage: 10 MG, UNK
     Dates: start: 20070101, end: 20120110

REACTIONS (4)
  - GASTRIC ULCER [None]
  - ADVERSE EVENT [None]
  - INSOMNIA [None]
  - RESTLESSNESS [None]
